FAERS Safety Report 21115718 (Version 2)
Quarter: 2022Q3

REPORT INFORMATION
  Report Type: Spontaneous
  Country: US (occurrence: US)
  Receive Date: 20220721
  Receipt Date: 20220730
  Transmission Date: 20221027
  Serious: No
  Sender: FDA-Public Use
  Company Number: US-SA-SAC20220718002015

PATIENT
  Age: 26 Year
  Sex: Male

DRUGS (11)
  1. DUPIXENT [Suspect]
     Active Substance: DUPILUMAB
     Indication: Dermatitis atopic
     Dosage: 300 MG, QOW
     Route: 058
     Dates: start: 20210818
  2. CLOBETASOL [Concomitant]
     Active Substance: CLOBETASOL
  3. ERYTHROMYCIN [Concomitant]
     Active Substance: ERYTHROMYCIN
  4. HUMIRA [Concomitant]
     Active Substance: ADALIMUMAB
  5. MESALAMINE [Concomitant]
     Active Substance: MESALAMINE
  6. ONDANSETRON [Concomitant]
     Active Substance: ONDANSETRON
  7. PROMACTA [Concomitant]
     Active Substance: ELTROMBOPAG OLAMINE
  8. TACROLIMUS [Concomitant]
     Active Substance: TACROLIMUS
  9. TRIAMCINOLONE ACETONIDE [Concomitant]
     Active Substance: TRIAMCINOLONE ACETONIDE
  10. SUPREP BOWEL PREP [Concomitant]
     Active Substance: MAGNESIUM SULFATE\POTASSIUM SULFATE\SODIUM SULFATE
  11. HIDROCORT [Concomitant]

REACTIONS (3)
  - Dermatitis atopic [Unknown]
  - Impaired quality of life [Unknown]
  - Drug ineffective [Unknown]
